FAERS Safety Report 25491754 (Version 1)
Quarter: 2025Q2

REPORT INFORMATION
  Report Type: Spontaneous
  Country: US (occurrence: US)
  Receive Date: 20250630
  Receipt Date: 20250630
  Transmission Date: 20250717
  Serious: Yes (Life-Threatening, Hospitalization, Disabling, Other)
  Sender: CIPLA
  Company Number: US-MLMSERVICE-20250611-PI540658-00057-1

PATIENT

DRUGS (2)
  1. ATORVASTATIN [Suspect]
     Active Substance: ATORVASTATIN
     Indication: Cardiovascular event prophylaxis
     Route: 065
  2. LEVOTHYROXINE [Concomitant]
     Active Substance: LEVOTHYROXINE
     Indication: Hypothyroidism
     Route: 065

REACTIONS (4)
  - Drug-disease interaction [Recovering/Resolving]
  - Rhabdomyolysis [Recovering/Resolving]
  - Hypertransaminasaemia [Recovering/Resolving]
  - Acute kidney injury [Recovering/Resolving]
